FAERS Safety Report 4922449-0 (Version None)
Quarter: 2006Q1

REPORT INFORMATION
  Report Type: 
  Country: None (occurrence: None)
  Receive Date: 20060224
  Receipt Date: 20051005
  Transmission Date: 20060701
  Serious: Yes (Hospitalization)
  Sender: FDA-Public Use
  Company Number: US-MERCK-0510USA04186

PATIENT
  Age: 45 Year
  Sex: Female
  Weight: 48 kg

DRUGS (6)
  1. VIOXX [Suspect]
     Indication: INTERVERTEBRAL DISC PROTRUSION
     Route: 048
     Dates: start: 20030201, end: 20040201
  2. VIOXX [Suspect]
     Indication: BACK PAIN
     Route: 048
     Dates: start: 20030201, end: 20040201
  3. TYLENOL (CAPLET) [Concomitant]
     Route: 065
  4. NASACORT [Concomitant]
     Route: 065
  5. ALLEGRA [Concomitant]
     Route: 065
  6. FLEXERIL [Concomitant]
     Route: 065

REACTIONS (24)
  - ABDOMINAL PAIN [None]
  - ABDOMINAL PAIN UPPER [None]
  - BACK PAIN [None]
  - CARDIOVASCULAR DISORDER [None]
  - CARPAL TUNNEL SYNDROME [None]
  - CHEST DISCOMFORT [None]
  - CHEST PAIN [None]
  - DIZZINESS [None]
  - DYSARTHRIA [None]
  - DYSPNOEA [None]
  - FATIGUE [None]
  - GASTRIC ULCER [None]
  - HAEMANGIOMA [None]
  - HAEMATOCHEZIA [None]
  - HAEMORRHOIDS [None]
  - HEADACHE [None]
  - HYPOACUSIS [None]
  - MUSCULOSKELETAL PAIN [None]
  - OSTEOARTHRITIS [None]
  - PARAESTHESIA [None]
  - PNEUMONITIS [None]
  - RADICULAR PAIN [None]
  - VOMITING [None]
  - WEIGHT DECREASED [None]
